FAERS Safety Report 14953794 (Version 1)
Quarter: 2018Q2

REPORT INFORMATION
  Report Type: Spontaneous
  Country: US (occurrence: US)
  Receive Date: 20180509
  Receipt Date: 20180509
  Transmission Date: 20180711
  Serious: No
  Sender: FDA-Public Use
  Company Number: None

PATIENT
  Age: 87 Year
  Sex: Male
  Weight: 78.02 kg

DRUGS (1)
  1. AMOXICILLIN 500MG [Suspect]
     Active Substance: AMOXICILLIN

REACTIONS (2)
  - Dizziness [None]
  - Product label issue [None]
